FAERS Safety Report 6568109-4 (Version None)
Quarter: 2010Q1

REPORT INFORMATION
  Report Type: 
  Country: None (occurrence: None)
  Receive Date: 20100127
  Receipt Date: 20100112
  Transmission Date: 20100710
  Serious: Yes (Hospitalization, Other)
  Sender: FDA-Public Use
  Company Number: 1-21294330

PATIENT
  Age: 82 Year
  Sex: Male

DRUGS (9)
  1. AMIODARONE HCL [Suspect]
     Indication: ATRIAL FIBRILLATION
     Dosage: 100 MG DAILY, ORAL
     Route: 048
     Dates: start: 20090401
  2. CLONIDINE [Concomitant]
  3. DIOVAN [Concomitant]
  4. FUROSEMIDE [Concomitant]
  5. KLOR-CON M20 (POTASSIUM CHLORIDE) [Concomitant]
  6. PULMICORT FLEXHALER (BUDESONIDE) [Concomitant]
  7. PATANASE (OLOPATADINE) [Concomitant]
  8. WARFARIN SODIUM [Concomitant]
  9. REVALTIO (SILDENAFIL) [Concomitant]

REACTIONS (3)
  - ATRIAL FIBRILLATION [None]
  - HYPERVENTILATION [None]
  - HYPOTENSION [None]
